FAERS Safety Report 9785143 (Version 2)
Quarter: 2014Q1

REPORT INFORMATION
  Report Type: Report from Study
  Country: JP (occurrence: JP)
  Receive Date: 20131227
  Receipt Date: 20140203
  Transmission Date: 20141002
  Serious: Yes (Death)
  Sender: FDA-Public Use
  Company Number: JP-ROCHE-1326128

PATIENT
  Age: 85 Year
  Sex: Male

DRUGS (4)
  1. ALTEPLASE [Suspect]
     Indication: EMBOLIC STROKE
     Route: 042
     Dates: start: 20120818
  2. RADICUT [Concomitant]
     Route: 065
     Dates: start: 20120818, end: 20120820
  3. HEPARIN SODIUM [Concomitant]
     Route: 065
     Dates: start: 20120818, end: 20120818
  4. GLYCEOL [Concomitant]
     Route: 065
     Dates: start: 20120818, end: 20120820

REACTIONS (1)
  - Cerebral infarction [Fatal]
